FAERS Safety Report 25501634 (Version 2)
Quarter: 2025Q3

REPORT INFORMATION
  Report Type: Spontaneous
  Country: US (occurrence: US)
  Receive Date: 20250701
  Receipt Date: 20250721
  Transmission Date: 20251020
  Serious: No
  Sender: ABBVIE
  Company Number: US-ABBVIE-6349681

PATIENT
  Sex: Female

DRUGS (1)
  1. BOTOX [Suspect]
     Active Substance: ONABOTULINUMTOXINA
     Indication: Migraine
     Route: 065

REACTIONS (5)
  - Mood swings [Unknown]
  - Muscular weakness [Unknown]
  - Dysphagia [Unknown]
  - Muscle spasms [Unknown]
  - Fatigue [Unknown]
